FAERS Safety Report 11558538 (Version 1)
Quarter: 2015Q3

REPORT INFORMATION
  Report Type: Spontaneous
  Country: GB (occurrence: GB)
  Receive Date: 20150928
  Receipt Date: 20150928
  Transmission Date: 20151125
  Serious: Yes (Other)
  Sender: FDA-Public Use
  Company Number: GB-ELI_LILLY_AND_COMPANY-GB201509004736

PATIENT
  Age: 42 Year
  Sex: Female
  Weight: 59.41 kg

DRUGS (9)
  1. FLUOXETINE [Interacting]
     Active Substance: FLUOXETINE\FLUOXETINE HYDROCHLORIDE
     Indication: DEPRESSION
     Dosage: UNK, UNKNOWN
     Route: 048
     Dates: start: 201407, end: 201410
  2. ZOLADEX [Interacting]
     Active Substance: GOSERELIN ACETATE
     Indication: UTERINE LEIOMYOMA
     Dosage: 1 DF, OTHER: 1 INJECTION OF LOW DOSE EVERY 4 WEEKS
     Route: 051
     Dates: start: 20150107, end: 20150430
  3. CITALOPRAM [Suspect]
     Active Substance: CITALOPRAM HYDROBROMIDE
     Dosage: 30 MG, QD
     Route: 065
     Dates: start: 20150203, end: 20150226
  4. FLUOXETINE [Interacting]
     Active Substance: FLUOXETINE\FLUOXETINE HYDROCHLORIDE
     Dosage: 20 MG, QD
     Route: 048
     Dates: start: 20150327, end: 20150605
  5. CITALOPRAM [Suspect]
     Active Substance: CITALOPRAM HYDROBROMIDE
     Indication: DEPRESSION
     Dosage: 20 MG, QD
     Route: 065
     Dates: start: 20141003, end: 20150203
  6. CITALOPRAM [Suspect]
     Active Substance: CITALOPRAM HYDROBROMIDE
     Dosage: 20 MG, QD
     Route: 065
     Dates: start: 20150226, end: 20150305
  7. NORETHISTERONE [Interacting]
     Active Substance: NORETHINDRONE
     Indication: MENORRHAGIA
     Dosage: UNK
     Dates: end: 201412
  8. CITALOPRAM [Suspect]
     Active Substance: CITALOPRAM HYDROBROMIDE
     Dosage: 10 MG, QD
     Route: 065
     Dates: start: 20150305, end: 20150327
  9. FLUOXETINE [Interacting]
     Active Substance: FLUOXETINE\FLUOXETINE HYDROCHLORIDE
     Dosage: 40 MG, QD
     Route: 048
     Dates: start: 20150605

REACTIONS (6)
  - Uterine leiomyoma [Unknown]
  - Depressive symptom [Recovering/Resolving]
  - Drug interaction [Recovered/Resolved]
  - Drug ineffective [Recovered/Resolved]
  - Suicidal ideation [Recovered/Resolved]
  - Inhibitory drug interaction [Recovered/Resolved]

NARRATIVE: CASE EVENT DATE: 201501
